FAERS Safety Report 17581561 (Version 1)
Quarter: 2020Q1

REPORT INFORMATION
  Report Type: Spontaneous
  Country: FR (occurrence: FR)
  Receive Date: 20200325
  Receipt Date: 20200325
  Transmission Date: 20200409
  Serious: Yes (Life-Threatening, Other)
  Sender: FDA-Public Use
  Company Number: FR-FERRINGPH-2020FE01915

PATIENT
  Age: 36 Year
  Sex: Female
  Weight: 72 kg

DRUGS (1)
  1. PROPESS [Suspect]
     Active Substance: DINOPROSTONE
     Indication: LABOUR INDUCTION
     Dosage: 10 MG, ONCE/SINGLE
     Route: 067
     Dates: start: 20200217, end: 20200217

REACTIONS (2)
  - Third stage postpartum haemorrhage [Recovered/Resolved]
  - Uterine rupture [Recovered/Resolved]

NARRATIVE: CASE EVENT DATE: 20200217
